FAERS Safety Report 7705825-2 (Version None)
Quarter: 2011Q3

REPORT INFORMATION
  Report Type: 
  Country: None (occurrence: None)
  Receive Date: 20110824
  Receipt Date: 20110815
  Transmission Date: 20111222
  Serious: Yes (Hospitalization, Other)
  Sender: FDA-Public Use
  Company Number: US-ELI_LILLY_AND_COMPANY-US201106005441

PATIENT
  Sex: Female
  Weight: 62.585 kg

DRUGS (3)
  1. AMBIEN [Concomitant]
  2. PERCOCET [Concomitant]
  3. CYMBALTA [Suspect]
     Indication: DEPRESSION
     Dosage: 60 MG, QD
     Route: 048
     Dates: start: 20110520

REACTIONS (5)
  - HAEMOGLOBIN DECREASED [None]
  - WHITE BLOOD CELL COUNT DECREASED [None]
  - PANCREATITIS ACUTE [None]
  - INSOMNIA [None]
  - ANXIETY [None]
